FAERS Safety Report 24251382 (Version 1)
Quarter: 2024Q3

REPORT INFORMATION
  Report Type: Spontaneous
  Country: CN (occurrence: CN)
  Receive Date: 20240826
  Receipt Date: 20240826
  Transmission Date: 20241016
  Serious: Yes (Other)
  Sender: PFIZER
  Company Number: CN-PFIZER INC-PV202400109358

PATIENT
  Age: 4 Year
  Sex: Female
  Weight: 16.3 kg

DRUGS (2)
  1. CYTARABINE [Suspect]
     Active Substance: CYTARABINE
     Indication: Leukaemia
     Dosage: 34.4 MG, 2X/DAY
     Route: 041
     Dates: start: 20240705, end: 20240708
  2. DEXTROSE [Concomitant]
     Active Substance: DEXTROSE\DEXTROSE MONOHYDRATE
     Indication: Vehicle solution use
     Dosage: 100 ML, 2X/DAY
     Route: 041
     Dates: start: 20240705, end: 20240708

REACTIONS (4)
  - Pyrexia [Unknown]
  - Headache [Unknown]
  - Pain [Unknown]
  - Blood fibrinogen decreased [Unknown]

NARRATIVE: CASE EVENT DATE: 20240708
